FAERS Safety Report 11702102 (Version 7)
Quarter: 2017Q1

REPORT INFORMATION
  Report Type: Spontaneous
  Country: US (occurrence: US)
  Receive Date: 20151105
  Receipt Date: 20170224
  Transmission Date: 20170428
  Serious: Yes (Other)
  Sender: FDA-Public Use
  Company Number: PHEH2015US022555

PATIENT
  Age: 28 Year
  Sex: Female
  Weight: 61.22 kg

DRUGS (3)
  1. ONDANSETRON [Suspect]
     Active Substance: ONDANSETRON
     Indication: VOMITING IN PREGNANCY
     Dosage: 8 MG, EVERY FOUR TO SIX HOURS (Q6H)
     Route: 065
     Dates: start: 20140410, end: 20141231
  2. ZOFRAN ODT [Suspect]
     Active Substance: ONDANSETRON HYDROCHLORIDE
     Indication: VOMITING IN PREGNANCY
     Dosage: 8 MG, EVERY FOUR TO SIX HOURS (Q6H)
     Route: 048
     Dates: start: 20140410, end: 20141231
  3. ZOFRAN [Suspect]
     Active Substance: ONDANSETRON HYDROCHLORIDE
     Indication: VOMITING IN PREGNANCY
     Dosage: 8 MG, EVERY FOUR TO SIX HOURS (Q6H)
     Route: 048
     Dates: start: 20140410, end: 20141231

REACTIONS (8)
  - Emotional distress [Unknown]
  - Anaemia [Unknown]
  - Injury [Unknown]
  - Acute sinusitis [Unknown]
  - Product use issue [Unknown]
  - Maternal exposure during pregnancy [Unknown]
  - Pain [Unknown]
  - Anxiety [Unknown]

NARRATIVE: CASE EVENT DATE: 20140525
